FAERS Safety Report 17170316 (Version 2)
Quarter: 2020Q2

REPORT INFORMATION
  Report Type: Spontaneous
  Country: BE (occurrence: BE)
  Receive Date: 20191218
  Receipt Date: 20200429
  Transmission Date: 20200713
  Serious: Yes (Hospitalization)
  Sender: FDA-Public Use
  Company Number: BE-JNJFOC-20191214184

PATIENT
  Age: 66 Year
  Sex: Female

DRUGS (7)
  1. YONDELIS [Suspect]
     Active Substance: TRABECTEDIN
     Dosage: SECOND CYCLE
     Route: 042
     Dates: start: 20190828, end: 2019
  2. NEXIAM                             /01479302/ [Concomitant]
     Active Substance: ESOMEPRAZOLE MAGNESIUM
     Route: 065
  3. STEOVIT FORTE [Concomitant]
     Dosage: 1000/880
     Route: 065
  4. TARDYFERON [Concomitant]
     Active Substance: FERROUS SULFATE
     Route: 065
  5. MEDROL [Concomitant]
     Active Substance: METHYLPREDNISOLONE
     Route: 065
  6. YONDELIS [Suspect]
     Active Substance: TRABECTEDIN
     Dosage: THIRD CYCLE
     Route: 042
     Dates: start: 20191025
  7. YONDELIS [Suspect]
     Active Substance: TRABECTEDIN
     Indication: SYNOVIAL SARCOMA
     Dosage: FIRST CYCLE
     Route: 042
     Dates: start: 20190806, end: 2019

REACTIONS (1)
  - Interstitial lung disease [Unknown]

NARRATIVE: CASE EVENT DATE: 20191105
